FAERS Safety Report 8227986-1 (Version None)
Quarter: 2012Q1

REPORT INFORMATION
  Report Type: 
  Country: None (occurrence: None)
  Receive Date: 20120322
  Receipt Date: 20120131
  Transmission Date: 20120608
  Serious: No
  Sender: FDA-Public Use
  Company Number: US-BRISTOL-MYERS SQUIBB COMPANY-16376295

PATIENT
  Age: 68 Year
  Sex: Male

DRUGS (5)
  1. SIMVASTATIN [Concomitant]
  2. HYDROCHLOROTHIAZIDE [Concomitant]
  3. DOXYCYCLINE [Concomitant]
  4. METOPROLOL SUCCINATE [Concomitant]
  5. ERBITUX [Suspect]

REACTIONS (2)
  - HYPERTENSION [None]
  - HEADACHE [None]
